FAERS Safety Report 8248594-2 (Version None)
Quarter: 2012Q1

REPORT INFORMATION
  Report Type: 
  Country: None (occurrence: None)
  Receive Date: 20120330
  Receipt Date: 20120323
  Transmission Date: 20120608
  Serious: Yes (Other)
  Sender: FDA-Public Use
  Company Number: ES-ASTRAZENECA-2012SE20079

PATIENT
  Age: 76 Year
  Sex: Male

DRUGS (5)
  1. SINTROM [Suspect]
     Indication: PROPHYLAXIS
     Route: 048
     Dates: start: 20110101, end: 20120228
  2. CASODEX [Concomitant]
     Route: 048
  3. ZOLADEX [Suspect]
     Indication: PROSTATE CANCER
     Dosage: 10.8 MG, 1 DOSE QUATERLY.
     Route: 058
     Dates: start: 20110801
  4. ATORVASTATIN CALCIUM [Concomitant]
     Route: 048
  5. ALLOPURINOL [Concomitant]
     Dosage: 100 TABLETS, 25 TABLETS
     Route: 048

REACTIONS (1)
  - APPLICATION SITE HAEMATOMA [None]
